FAERS Safety Report 7006546-4 (Version None)
Quarter: 2010Q3

REPORT INFORMATION
  Report Type: 
  Country: None (occurrence: None)
  Receive Date: 20100921
  Receipt Date: 20100921
  Transmission Date: 20110219
  Serious: Yes (Other)
  Sender: FDA-Public Use
  Company Number: None

PATIENT
  Age: 44 Year
  Sex: Female
  Weight: 60.3284 kg

DRUGS (1)
  1. LEVAQUIN [Suspect]
     Indication: ANTIBIOTIC THERAPY
     Dosage: 10 TABLETS 1 A DAY FOR 10 DAY PO
     Route: 048
     Dates: start: 20100902, end: 20100909

REACTIONS (8)
  - ARTHROPATHY [None]
  - CHEST DISCOMFORT [None]
  - FEAR [None]
  - GASTROINTESTINAL DISORDER [None]
  - GINGIVAL DISORDER [None]
  - NAUSEA [None]
  - NIGHTMARE [None]
  - SLEEP DISORDER [None]
